FAERS Safety Report 4762792-1 (Version None)
Quarter: 2005Q3

REPORT INFORMATION
  Report Type: 
  Country: None (occurrence: None)
  Receive Date: 20050907
  Receipt Date: 20050826
  Transmission Date: 20060218
  Serious: Yes (Hospitalization)
  Sender: FDA-Public Use
  Company Number: SE-JNJFOC-20050806426

PATIENT
  Age: 30 Year
  Sex: Female

DRUGS (4)
  1. CONCERTA [Suspect]
     Dosage: PATIENT RECEIVED CONCERTA IN DOSES FROM 18MG-54MG DAILY OVER 8 MONTHS.
     Route: 048
  2. CONCERTA [Suspect]
     Route: 048
  3. EFFEXOR XR [Interacting]
     Indication: DRUG USE FOR UNKNOWN INDICATION
     Route: 048
  4. BURONIL [Interacting]
     Indication: DRUG USE FOR UNKNOWN INDICATION
     Route: 048

REACTIONS (3)
  - CARDIAC FAILURE [None]
  - CARDIOMYOPATHY [None]
  - DRUG INTERACTION [None]
